FAERS Safety Report 25348461 (Version 1)
Quarter: 2025Q2

REPORT INFORMATION
  Report Type: Spontaneous
  Country: CL (occurrence: None)
  Receive Date: 20250522
  Receipt Date: 20250522
  Transmission Date: 20250717
  Serious: Yes (Hospitalization, Disabling, Other)
  Sender: FDA-CTU
  Company Number: None

PATIENT
  Age: 19 Year
  Weight: 50 kg

DRUGS (1)
  1. INVEGA SUSTENNA [Suspect]
     Active Substance: PALIPERIDONE PALMITATE
     Indication: Behavioural therapy
     Route: 050
     Dates: start: 20241003, end: 20241215

REACTIONS (8)
  - Neuromyopathy [None]
  - Speech disorder [None]
  - Eating disorder [None]
  - Muscular weakness [None]
  - Dysarthria [None]
  - Pain in extremity [None]
  - Sensorimotor disorder [None]
  - Neuropathy peripheral [None]

NARRATIVE: CASE EVENT DATE: 20250202
